FAERS Safety Report 5307951-4 (Version None)
Quarter: 2007Q2

REPORT INFORMATION
  Report Type: 
  Country: None (occurrence: None)
  Receive Date: 20070426
  Receipt Date: 20070412
  Transmission Date: 20071010
  Serious: Yes (Other)
  Sender: FDA-Public Use
  Company Number: 2007AP02221

PATIENT
  Age: 18 Year
  Sex: Male

DRUGS (8)
  1. DIPRIVAN [Suspect]
     Indication: SEDATION
     Route: 042
     Dates: start: 20070310, end: 20070313
  2. DIPRIVAN [Suspect]
     Route: 042
     Dates: start: 20070310
  3. DIPRIVAN [Suspect]
     Route: 042
     Dates: start: 20070311
  4. DIPRIVAN [Suspect]
     Route: 042
     Dates: start: 20070312
  5. DIPRIVAN [Suspect]
     Route: 042
     Dates: start: 20070313
  6. MIDAZOLAM HCL [Concomitant]
     Route: 042
     Dates: start: 20070309
  7. FENTANYL [Concomitant]
     Route: 042
     Dates: start: 20070309
  8. BLOOD TRANSFUSION [Concomitant]
     Indication: HAEMORRHAGE
     Dates: start: 20070309, end: 20070309

REACTIONS (1)
  - BLOOD CREATINE PHOSPHOKINASE INCREASED [None]
